FAERS Safety Report 5525416-1 (Version None)
Quarter: 2007Q4

REPORT INFORMATION
  Report Type: 
  Country: None (occurrence: None)
  Receive Date: 20071120
  Receipt Date: 20071108
  Transmission Date: 20080405
  Serious: Yes (Other)
  Sender: FDA-Public Use
  Company Number: TPA2007A02315

PATIENT
  Sex: Male

DRUGS (2)
  1. ROZEREM [Suspect]
     Indication: DRUG USE FOR UNKNOWN INDICATION
     Dosage: 8 MG, PER ORAL
     Route: 048
  2. UNSPECIFIED PRODUCT (ALL OTHER THERAPEUTIC PRODUCTS) [Suspect]
     Indication: DRUG USE FOR UNKNOWN INDICATION

REACTIONS (5)
  - DRUG INTERACTION [None]
  - HEADACHE [None]
  - NAUSEA [None]
  - PSYCHOTIC DISORDER [None]
  - VOMITING [None]
